FAERS Safety Report 4587372-2 (Version None)
Quarter: 2005Q1

REPORT INFORMATION
  Report Type: 
  Country: None (occurrence: None)
  Receive Date: 20050216
  Receipt Date: 20050203
  Transmission Date: 20050727
  Serious: Yes (Hospitalization)
  Sender: FDA-Public Use
  Company Number: US-JNJFOC-20050103616

PATIENT
  Sex: Female

DRUGS (24)
  1. INFLIXIMAB [Suspect]
     Indication: RHEUMATOID ARTHRITIS
     Route: 042
  2. PREDNISONE [Concomitant]
  3. QUININE SULFATE [Concomitant]
  4. METFORMIN [Concomitant]
  5. FOSAMAX [Concomitant]
  6. ZOCOR [Concomitant]
  7. SINGULAIR [Concomitant]
  8. ADVAIR DISKUS 100/50 [Concomitant]
  9. ADVAIR DISKUS 100/50 [Concomitant]
  10. DARVOCET-N 100 [Concomitant]
  11. DARVOCET-N 100 [Concomitant]
     Dosage: N-100
  12. VALTREX [Concomitant]
  13. ZYRTEC [Concomitant]
  14. CALCIUM GLUCONATE [Concomitant]
  15. ASPIRIN [Concomitant]
  16. FOLIC ACID [Concomitant]
  17. VITAMIN B COMPLEX CAP [Concomitant]
  18. VITAMIN B COMPLEX CAP [Concomitant]
  19. VITAMIN B COMPLEX CAP [Concomitant]
  20. VITAMIN B COMPLEX CAP [Concomitant]
  21. VITAMIN E [Concomitant]
  22. ESTER C [Concomitant]
  23. OSTEO BIFLEX [Concomitant]
  24. OSTEO BIFLEX [Concomitant]

REACTIONS (3)
  - BRONCHITIS [None]
  - CHRONIC OBSTRUCTIVE PULMONARY DISEASE [None]
  - WHITE BLOOD CELL COUNT INCREASED [None]
